FAERS Safety Report 16471668 (Version 1)
Quarter: 2019Q2

REPORT INFORMATION
  Report Type: Report from Study
  Country: None (occurrence: US)
  Receive Date: 20190624
  Receipt Date: 20190624
  Transmission Date: 20190711
  Serious: Yes (Other)
  Sender: FDA-Public Use
  Company Number: US-ABBVIE-19K-163-2825761-00

PATIENT
  Age: 32 Year
  Sex: Female

DRUGS (1)
  1. HUMIRA [Suspect]
     Active Substance: ADALIMUMAB
     Indication: ANKYLOSING SPONDYLITIS
     Route: 058
     Dates: start: 20190411

REACTIONS (13)
  - Ocular hyperaemia [Recovered/Resolved]
  - Back pain [Unknown]
  - Insomnia [Unknown]
  - Loss of consciousness [Unknown]
  - Inflammation [Unknown]
  - Neck pain [Unknown]
  - Back pain [Unknown]
  - Eye haemorrhage [Recovered/Resolved]
  - Dysstasia [Unknown]
  - Therapeutic response shortened [Unknown]
  - Hypoaesthesia [Unknown]
  - Arthralgia [Unknown]
  - Unevaluable event [Unknown]

NARRATIVE: CASE EVENT DATE: 2019
